FAERS Safety Report 10619882 (Version 1)
Quarter: 2014Q4

REPORT INFORMATION
  Report Type: Spontaneous
  Country: GB (occurrence: None)
  Receive Date: 20141128
  Receipt Date: 20141128
  Transmission Date: 20150529
  Serious: Yes (Hospitalization)
  Sender: FDA-Public Use
  Company Number: GB-H14001-14-01697

PATIENT
  Sex: Female

DRUGS (3)
  1. CODEINE(CODEINE) [Concomitant]
  2. CO-AMOXICLAV [Suspect]
     Active Substance: AMOXICILLIN\CLAVULANIC ACID
     Indication: URINARY TRACT INFECTION
     Route: 048
     Dates: start: 20141103, end: 20141105
  3. PARACETAMOL(PARACETAMOL) [Concomitant]

REACTIONS (4)
  - Blood alkaline phosphatase increased [None]
  - Blood bilirubin increased [None]
  - Alanine aminotransferase increased [None]
  - Liver injury [None]

NARRATIVE: CASE EVENT DATE: 20141105
